FAERS Safety Report 5406878-7 (Version None)
Quarter: 2007Q3

REPORT INFORMATION
  Report Type: 
  Country: None (occurrence: None)
  Receive Date: 20070807
  Receipt Date: 20070727
  Transmission Date: 20080115
  Serious: Yes (Hospitalization, Other)
  Sender: FDA-Public Use
  Company Number: HQWYE140910OCT03

PATIENT
  Sex: Female

DRUGS (4)
  1. PREMPRO [Suspect]
     Indication: HORMONE REPLACEMENT THERAPY
     Dosage: DAILY
     Route: 048
  2. ESTRATEST [Suspect]
  3. PREMARIN [Suspect]
     Indication: HORMONE REPLACEMENT THERAPY
  4. ESTRATAB [Suspect]

REACTIONS (1)
  - BREAST CANCER METASTATIC [None]
